FAERS Safety Report 5088765-X (Version None)
Quarter: 2006Q3

REPORT INFORMATION
  Report Type: 
  Country: None (occurrence: None)
  Receive Date: 20060824
  Receipt Date: 20060824
  Transmission Date: 20061208
  Serious: Yes (Hospitalization)
  Sender: FDA-Public Use
  Company Number: None

PATIENT
  Age: 82 Year
  Sex: Male
  Weight: 68.3 kg

DRUGS (1)
  1. PHENERGAN [Suspect]
     Dosage: 25 MG IV
     Route: 042
     Dates: start: 20060811, end: 20060811

REACTIONS (2)
  - NEUROLEPTIC MALIGNANT SYNDROME [None]
  - THERAPY NON-RESPONDER [None]
